FAERS Safety Report 4535907-8 (Version None)
Quarter: 2004Q4

REPORT INFORMATION
  Report Type: 
  Country: None (occurrence: None)
  Receive Date: 20041223
  Receipt Date: 20041213
  Transmission Date: 20050328
  Serious: Yes (Hospitalization)
  Sender: FDA-Public Use
  Company Number: NL-JNJFOC-20041105340

PATIENT
  Sex: Female

DRUGS (22)
  1. BLINDED; INFLIXIMAB, RECOMBINANT [Suspect]
     Route: 042
  2. BLINDED; INFLIXIMAB, RECOMBINANT [Suspect]
     Route: 042
  3. BLINDED; INFLIXIMAB, RECOMBINANT [Suspect]
     Route: 042
  4. BLINDED; INFLIXIMAB, RECOMBINANT [Suspect]
     Route: 042
  5. BLINDED; INFLIXIMAB, RECOMBINANT [Suspect]
     Indication: CACHEXIA
     Route: 042
  6. PLACEBO [Suspect]
     Route: 042
  7. PLACEBO [Suspect]
     Route: 042
  8. PLACEBO [Suspect]
     Route: 042
  9. PLACEBO [Suspect]
     Route: 042
  10. PLACEBO [Suspect]
     Indication: CACHEXIA
     Route: 042
  11. IBUPROFEN [Concomitant]
     Route: 049
  12. SEVREDOL [Concomitant]
     Route: 049
  13. MORPHINE SULFATE [Concomitant]
     Route: 049
  14. BIFITERAL [Concomitant]
     Route: 049
  15. ENOXAPARIN SODIUM [Concomitant]
     Route: 058
  16. RAMIPRIL [Concomitant]
     Route: 049
  17. L-THYROXIN [Concomitant]
     Route: 049
  18. TOREN [Concomitant]
     Route: 049
  19. PANTOZOL [Concomitant]
     Route: 049
  20. HCT [Concomitant]
     Route: 049
  21. GEMCITABINE [Concomitant]
  22. DURAGESIC [Concomitant]
     Route: 062

REACTIONS (3)
  - ASCITES [None]
  - DEEP VEIN THROMBOSIS [None]
  - DISEASE PROGRESSION [None]
